FAERS Safety Report 5701013-X (Version None)
Quarter: 2008Q2

REPORT INFORMATION
  Report Type: 
  Country: None (occurrence: None)
  Receive Date: 20080407
  Receipt Date: 20080325
  Transmission Date: 20081010
  Serious: Yes (Other)
  Sender: FDA-Public Use
  Company Number: 100#08#2008-01796

PATIENT
  Age: 60 Year
  Sex: Female

DRUGS (1)
  1. DICLOFENAC(INJECTION) (DICLOFENAC) [Suspect]
     Indication: BACK PAIN
     Dosage: INTRAMUSCULAR
     Route: 030

REACTIONS (3)
  - EMBOLIA CUTIS MEDICAMENTOSA [None]
  - SCAR [None]
  - SKIN GRAFT [None]
